FAERS Safety Report 8877811 (Version 2)
Quarter: 2013Q1

REPORT INFORMATION
  Report Type: Spontaneous
  Country: US (occurrence: None)
  Receive Date: 20121026
  Receipt Date: 20121107
  Transmission Date: 20140127
  Serious: Yes (Other)
  Sender: FDA-Public Use
  Company Number: AUR-APL-2012-02997

PATIENT
  Age: 76 Year
  Sex: Male
  Weight: 94 kg

DRUGS (12)
  1. TERBINAFINE [Suspect]
     Indication: FUNGAL SKIN INFECTION
     Dosage: 250 MG (250 MG, 1 IN 1 D) , UNKNOWN
     Dates: start: 20120404, end: 20120604
  2. ALLOPURINOL [Concomitant]
  3. ASPIRIN (ACETYSALICYLIC ACID) [Concomitant]
  4. FELODIPINE (FELODIPINE) [Concomitant]
  5. INDAPAMIDE (INDAPAMIDE) [Concomitant]
  6. LEVEMIR (INSULIN DETEMIR) [Concomitant]
  7. NOVORAPID (INSULIN ASPART) [Concomitant]
  8. RAMIPRIL (RAMIPRIL) [Concomitant]
  9. ROSUVASTATIN (ROSUVASTATIN) [Concomitant]
  10. TRAMADOL (TRAMADOL) [Concomitant]
  11. ACETYLSALICYLIC ACID (ACETYLSALICYLIC ACID) [Concomitant]
  12. INSULIN DETEMIR (INSULIN DETEMIR) [Concomitant]

REACTIONS (4)
  - Dysgeusia [None]
  - Ageusia [None]
  - Appetite disorder [None]
  - Drug ineffective [None]
